FAERS Safety Report 6294858-1 (Version None)
Quarter: 2009Q3

REPORT INFORMATION
  Report Type: 
  Country: None (occurrence: None)
  Receive Date: 20090803
  Receipt Date: 20090728
  Transmission Date: 20100115
  Serious: Yes (Hospitalization, Other)
  Sender: FDA-Public Use
  Company Number: PHHY2008DE29261

PATIENT
  Sex: Female
  Weight: 67 kg

DRUGS (12)
  1. MYFORTIC [Suspect]
     Indication: SYSTEMIC LUPUS ERYTHEMATOSUS
     Dosage: 1080 MG/DAY
     Route: 048
     Dates: start: 20060101
  2. QUENSYL [Concomitant]
     Indication: SYSTEMIC LUPUS ERYTHEMATOSUS
     Dosage: 400MG/D
     Route: 048
  3. TENORMIN [Concomitant]
     Indication: HYPERTENSION
     Dosage: 37.25MG/D
  4. AMARYL [Concomitant]
     Indication: DIABETES MELLITUS
     Dosage: 6 MG/D
     Route: 048
  5. PREDNISOLONE [Concomitant]
     Indication: SYSTEMIC LUPUS ERYTHEMATOSUS
     Dosage: 10MG/D
     Route: 048
  6. ALLOPURINOL [Concomitant]
  7. SIMVASTATIN [Concomitant]
  8. OMEPRAZOL [Concomitant]
  9. DIGITOXIN TAB [Concomitant]
     Dosage: 0.07
  10. L-THYROXIN [Concomitant]
  11. LASIX [Concomitant]
     Indication: HYPERTENSION
     Dosage: 80 MG/D
     Route: 048
  12. MARCUMAR [Concomitant]

REACTIONS (4)
  - LEUKOPENIA [None]
  - PROTEINURIA [None]
  - SPLENOMEGALY [None]
  - THROMBOCYTOPENIA [None]
